FAERS Safety Report 13053290 (Version 2)
Quarter: 2017Q1

REPORT INFORMATION
  Report Type: Spontaneous
  Country: FR (occurrence: FR)
  Receive Date: 20161222
  Receipt Date: 20170303
  Transmission Date: 20170428
  Serious: Yes (Life-Threatening)
  Sender: FDA-Public Use
  Company Number: FR-ORION CORPORATION ORION PHARMA-TREX2016-2663

PATIENT
  Age: 60 Year
  Sex: Male

DRUGS (5)
  1. AERIUS [Concomitant]
     Active Substance: DESLORATADINE
     Dosage: STRENGTH: 5 MG
     Route: 048
  2. IMETH [Suspect]
     Active Substance: METHOTREXATE SODIUM
     Indication: PSORIASIS
     Route: 065
  3. SPECIAFOLDINE [Concomitant]
     Active Substance: FOLIC ACID
     Dosage: STRENGTH: 5 MG
     Route: 048
     Dates: start: 20160601
  4. VENTOLINE [Concomitant]
     Active Substance: ALBUTEROL
     Dosage: STRENGTH: 100 MCG/DOSE
     Route: 055
  5. IMETH [Suspect]
     Active Substance: METHOTREXATE SODIUM
     Route: 065
     Dates: start: 201606, end: 20161115

REACTIONS (8)
  - Meningitis listeria [Recovering/Resolving]
  - Encephalitis brain stem [Recovering/Resolving]
  - Lower respiratory tract congestion [Unknown]
  - Vertebral artery occlusion [Unknown]
  - Brain injury [Unknown]
  - Bacterial abscess central nervous system [Recovering/Resolving]
  - Ulcerative keratitis [Unknown]
  - Punctate keratitis [Unknown]

NARRATIVE: CASE EVENT DATE: 20161115
